FAERS Safety Report 4557763-4 (Version None)
Quarter: 2005Q1

REPORT INFORMATION
  Report Type: 
  Country: None (occurrence: None)
  Receive Date: 20050103
  Receipt Date: 20040827
  Transmission Date: 20050727
  Serious: Yes (Other)
  Sender: FDA-Public Use
  Company Number: 2004UW16047

PATIENT
  Sex: Female

DRUGS (1)
  1. CRESTOR [Suspect]

REACTIONS (5)
  - ABASIA [None]
  - ANOREXIA [None]
  - CONVULSION [None]
  - FEELING ABNORMAL [None]
  - ILL-DEFINED DISORDER [None]
